FAERS Safety Report 4980821-7 (Version None)
Quarter: 2006Q2

REPORT INFORMATION
  Report Type: 
  Country: None (occurrence: None)
  Receive Date: 20060424
  Receipt Date: 20050930
  Transmission Date: 20061013
  Serious: Yes (Hospitalization)
  Sender: FDA-Public Use
  Company Number: US-MERCK-0510USA02129

PATIENT
  Age: 58 Year
  Sex: Male
  Weight: 104 kg

DRUGS (2)
  1. VIOXX [Suspect]
     Indication: ARTHRALGIA
     Route: 048
     Dates: start: 20030201, end: 20030801
  2. TYLENOL (CAPLET) [Concomitant]
     Route: 065

REACTIONS (19)
  - ABDOMINAL PAIN UPPER [None]
  - ANGINA PECTORIS [None]
  - ARTHRALGIA [None]
  - BACK PAIN [None]
  - CARDIOMEGALY [None]
  - CHEST PAIN [None]
  - CHRONIC OBSTRUCTIVE PULMONARY DISEASE [None]
  - DIARRHOEA [None]
  - DIZZINESS [None]
  - HELICOBACTER GASTRITIS [None]
  - HYPERTENSION [None]
  - INJURY [None]
  - LOWER RESPIRATORY TRACT INFECTION [None]
  - MUSCULOSKELETAL PAIN [None]
  - MYALGIA [None]
  - MYOCARDIAL INFARCTION [None]
  - PAROTITIS [None]
  - PROSTATITIS [None]
  - TEMPOROMANDIBULAR JOINT SYNDROME [None]
